FAERS Safety Report 5876677-0 (Version None)
Quarter: 2008Q3

REPORT INFORMATION
  Report Type: 
  Country: None (occurrence: None)
  Receive Date: 20080909
  Receipt Date: 20080909
  Transmission Date: 20090109
  Serious: Yes (Life-Threatening)
  Sender: FDA-Public Use
  Company Number: None

PATIENT
  Age: 58 Year
  Sex: Female
  Weight: 63.5036 kg

DRUGS (2)
  1. DILANTIN [Suspect]
     Indication: CONVULSION
     Dosage: 500MG DAILY PO
     Route: 048
     Dates: start: 20080501, end: 20080801
  2. PHENYTOIN [Suspect]
     Indication: CONVULSION
     Dosage: 400MG DAILY PO
     Route: 048
     Dates: start: 20030521, end: 20030821

REACTIONS (8)
  - ANTICONVULSANT DRUG LEVEL DECREASED [None]
  - CONCUSSION [None]
  - GRAND MAL CONVULSION [None]
  - HAEMORRHAGE [None]
  - HEAD INJURY [None]
  - MUSCULOSKELETAL PAIN [None]
  - PERIORBITAL HAEMATOMA [None]
  - SKIN DISCOLOURATION [None]
